FAERS Safety Report 6271314-8 (Version None)
Quarter: 2009Q3

REPORT INFORMATION
  Report Type: 
  Country: None (occurrence: None)
  Receive Date: 20090717
  Receipt Date: 20090702
  Transmission Date: 20100115
  Serious: Yes (Other)
  Sender: FDA-Public Use
  Company Number: IT-BAYER-200925644GPV

PATIENT
  Age: 47 Year
  Sex: Male

DRUGS (2)
  1. NEXAVAR [Suspect]
     Indication: HEPATIC NEOPLASM MALIGNANT
     Route: 048
     Dates: start: 20090513
  2. NEXAVAR [Suspect]
     Dosage: IN TOTAL 4 WEEKS 3 DAYS
     Route: 048
     Dates: end: 20090612

REACTIONS (1)
  - HEPATOTOXICITY [None]
